FAERS Safety Report 15440954 (Version 1)
Quarter: 2018Q3

REPORT INFORMATION
  Report Type: Spontaneous
  Country: CA (occurrence: CA)
  Receive Date: 20180928
  Receipt Date: 20180928
  Transmission Date: 20181010
  Serious: Yes (Life-Threatening)
  Sender: FDA-Public Use
  Company Number: CA-PFIZER INC-2018387489

PATIENT
  Age: 8 Month
  Sex: Male
  Weight: 7 kg

DRUGS (2)
  1. ADVIL PEDIATRIC DROPS [Suspect]
     Active Substance: IBUPROFEN
     Dosage: 1.9 ML, SINGLE
     Route: 048
  2. ADVIL PEDIATRIC DROPS [Suspect]
     Active Substance: IBUPROFEN
     Indication: PYREXIA
     Dosage: 1.5 ML, SINGLE
     Route: 048

REACTIONS (2)
  - Thermometry abnormal [Recovered/Resolved]
  - Body temperature decreased [Recovered/Resolved]
